FAERS Safety Report 10504169 (Version 1)
Quarter: 2014Q4

REPORT INFORMATION
  Report Type: Spontaneous
  Country: US (occurrence: None)
  Receive Date: 20141006
  Receipt Date: 20141006
  Transmission Date: 20150528
  Serious: Yes (Other)
  Sender: FDA-Public Use
  Company Number: VAL_03412_2014

PATIENT
  Age: 13 Year
  Sex: Male

DRUGS (13)
  1. EPOGEN [Concomitant]
     Active Substance: ERYTHROPOIETIN
  2. VITAMIN E /00110501/ [Concomitant]
  3. CRANBERRY /01512301/ [Concomitant]
  4. FERREX 150 FORTE [Concomitant]
     Active Substance: CYANOCOBALAMIN\FOLIC ACID\IRON
  5. PRINIVIL [Concomitant]
     Active Substance: LISINOPRIL
  6. SODIUM BICARBONATE. [Concomitant]
     Active Substance: SODIUM BICARBONATE
  7. NUTROPIN [Suspect]
     Active Substance: SOMATROPIN
     Indication: CHRONIC KIDNEY DISEASE
     Dosage: AT BED TIME
     Route: 058
  8. ROCALTROL [Suspect]
     Active Substance: CALCITRIOL
     Indication: PRODUCT USED FOR UNKNOWN INDICATION
     Dosage: 1X/WEEK
     Route: 048
  9. CALCIUM CARBONATE. [Concomitant]
     Active Substance: CALCIUM CARBONATE
  10. CHOLECALCIFEROL [Concomitant]
     Active Substance: CHOLECALCIFEROL
  11. ZESTRIL [Concomitant]
     Active Substance: LISINOPRIL
  12. ALLEGRA [Concomitant]
     Active Substance: FEXOFENADINE HYDROCHLORIDE
  13. VITAMINA D [Concomitant]

REACTIONS (6)
  - Headache [None]
  - Vitamin D decreased [None]
  - Hunger [None]
  - Blood creatinine increased [None]
  - Blood parathyroid hormone decreased [None]
  - Back pain [None]

NARRATIVE: CASE EVENT DATE: 20110505
